FAERS Safety Report 5756687-4 (Version None)
Quarter: 2008Q2

REPORT INFORMATION
  Report Type: 
  Country: None (occurrence: None)
  Receive Date: 20080603
  Receipt Date: 20080519
  Transmission Date: 20081010
  Serious: No
  Sender: FDA-Public Use
  Company Number: US-BAYER-200823355NA

PATIENT
  Sex: Female

DRUGS (2)
  1. AVELOX [Suspect]
     Indication: SINUSITIS
     Route: 048
  2. TESSALON [Concomitant]
     Indication: COUGH

REACTIONS (5)
  - COLITIS [None]
  - FEELING ABNORMAL [None]
  - HYPERTENSION [None]
  - TENDON PAIN [None]
  - TREMOR [None]
